FAERS Safety Report 9753639 (Version 3)
Quarter: 2014Q1

REPORT INFORMATION
  Report Type: Report from Study
  Country: CA (occurrence: CA)
  Receive Date: 20131213
  Receipt Date: 20140314
  Transmission Date: 20141002
  Serious: Yes (Other)
  Sender: FDA-Public Use
  Company Number: CA-ABBVIE-13P-028-1176545-00

PATIENT
  Age: 29 Year
  Sex: Male
  Weight: 79.45 kg

DRUGS (3)
  1. HUMIRA [Suspect]
     Indication: PSORIASIS
     Route: 058
     Dates: start: 20110128, end: 201310
  2. HUMIRA [Suspect]
     Route: 058
     Dates: start: 20140106
  3. MEDICATION FOR ALLERGY [Concomitant]
     Indication: HOUSE DUST ALLERGY

REACTIONS (3)
  - Uveitis [Recovered/Resolved]
  - Toxoplasmosis [Recovered/Resolved]
  - Infection parasitic [Unknown]
